FAERS Safety Report 6515503-3 (Version None)
Quarter: 2009Q4

REPORT INFORMATION
  Report Type: 
  Country: None (occurrence: None)
  Receive Date: 20091223
  Receipt Date: 20091218
  Transmission Date: 20100525
  Serious: Yes (Hospitalization)
  Sender: FDA-Public Use
  Company Number: PHHO2009FR15766

PATIENT
  Sex: Male
  Weight: 57 kg

DRUGS (3)
  1. CERTICAN [Suspect]
     Indication: LIVER TRANSPLANT
     Dosage: 4MG DAILY
     Route: 048
     Dates: start: 20091015
  2. TACROLIMUS COMP-TAC+ [Suspect]
     Indication: LIVER TRANSPLANT
     Dosage: 1MG DAILY
     Route: 048
     Dates: start: 20090919
  3. SOLUPRED [Concomitant]

REACTIONS (1)
  - ANAEMIA [None]
